APPROVED DRUG PRODUCT: CEFOTAXIME SODIUM
Active Ingredient: CEFOTAXIME SODIUM
Strength: EQ 1GM BASE/VIAL
Dosage Form/Route: INJECTABLE;INJECTION
Application: A203132 | Product #001
Applicant: HOSPIRA INC
Approved: Feb 19, 2016 | RLD: No | RS: No | Type: DISCN